FAERS Safety Report 4516041-X (Version None)
Quarter: 2004Q4

REPORT INFORMATION
  Report Type: 
  Country: None (occurrence: None)
  Receive Date: 20041129
  Receipt Date: 20041112
  Transmission Date: 20050328
  Serious: Yes (Death)
  Sender: FDA-Public Use
  Company Number: 2004097049

PATIENT
  Age: 78 Year
  Sex: Male

DRUGS (1)
  1. CELEBREX [Suspect]
     Indication: LOCALISED OSTEOARTHRITIS
     Dosage: ORAL
     Route: 048
     Dates: start: 20040901

REACTIONS (2)
  - CARDIOVASCULAR DISORDER [None]
  - DISEASE PROGRESSION [None]
